FAERS Safety Report 9171148 (Version 5)
Quarter: 2014Q1

REPORT INFORMATION
  Report Type: Spontaneous
  Country: US (occurrence: US)
  Receive Date: 20130319
  Receipt Date: 20140228
  Transmission Date: 20141002
  Serious: Yes (Hospitalization, Disabling, Other)
  Sender: FDA-Public Use
  Company Number: US-009507513-1303USA007524

PATIENT
  Sex: Female

DRUGS (3)
  1. FOSAMAX [Suspect]
     Indication: OSTEOPOROSIS
     Dosage: 10 MG, QD
     Route: 048
  2. FOSAMAX [Suspect]
     Dosage: 70 MG, QW
     Route: 048
  3. ALENDRONATE SODIUM [Suspect]
     Indication: OSTEOPOROSIS
     Dosage: 70 MG, QW
     Route: 048
     Dates: end: 20110813

REACTIONS (27)
  - Pathological fracture [Not Recovered/Not Resolved]
  - Intramedullary rod insertion [Unknown]
  - Breast cancer [Unknown]
  - Mastectomy [Unknown]
  - Sepsis [Unknown]
  - Dehydration [Unknown]
  - Blood potassium decreased [Unknown]
  - Hysterectomy [Unknown]
  - Low turnover osteopathy [Unknown]
  - Diabetes mellitus [Unknown]
  - Periodontal operation [Unknown]
  - Asthma [Unknown]
  - Endotracheal intubation complication [Unknown]
  - Goitre [Unknown]
  - Dry mouth [Unknown]
  - Hypertension [Unknown]
  - Cardiac electrophysiologic study abnormal [Unknown]
  - Hypokalaemia [Recovering/Resolving]
  - Hypomagnesaemia [Recovering/Resolving]
  - Haemorrhagic anaemia [Unknown]
  - Osteopenia [Unknown]
  - Biopsy thyroid gland [Unknown]
  - Thyroid neoplasm [Unknown]
  - Tinnitus [Unknown]
  - Hyperlipidaemia [Unknown]
  - Leukocytosis [Unknown]
  - Arthralgia [Unknown]
